FAERS Safety Report 7110316-6 (Version None)
Quarter: 2010Q4

REPORT INFORMATION
  Report Type: 
  Country: None (occurrence: None)
  Receive Date: 20101118
  Receipt Date: 20100924
  Transmission Date: 20110411
  Serious: No
  Sender: FDA-Public Use
  Company Number: A0883220A

PATIENT
  Age: 47 Year
  Sex: Female

DRUGS (2)
  1. COREG CR [Suspect]
     Indication: HYPERTENSION
     Dosage: 20MG PER DAY
     Route: 048
     Dates: start: 20100921
  2. THYROID MEDICATION [Concomitant]

REACTIONS (1)
  - HYPERTENSION [None]
